FAERS Safety Report 7321819-3 (Version None)
Quarter: 2011Q1

REPORT INFORMATION
  Report Type: 
  Country: None (occurrence: None)
  Receive Date: 20110217
  Receipt Date: 20110209
  Transmission Date: 20110831
  Serious: Yes (Hospitalization)
  Sender: FDA-Public Use
  Company Number: USA/USA/11/0017417

PATIENT
  Age: 62 Year
  Sex: Female

DRUGS (1)
  1. IBUPROFEN [Suspect]
     Indication: PLANTAR FASCIITIS
     Dosage: 600 MG, A FEW TIMES WEEKLY

REACTIONS (7)
  - INTESTINAL MASS [None]
  - ABDOMINAL PAIN LOWER [None]
  - WHITE BLOOD CELL COUNT INCREASED [None]
  - GASTROINTESTINAL DISORDER [None]
  - RECTAL HAEMORRHAGE [None]
  - COLONIC POLYP [None]
  - NECROSIS [None]
